FAERS Safety Report 13511646 (Version 17)
Quarter: 2025Q4

REPORT INFORMATION
  Report Type: Spontaneous
  Country: CA (occurrence: CA)
  Receive Date: 20170504
  Receipt Date: 20251006
  Transmission Date: 20260117
  Serious: Yes (Other)
  Sender: MERCK SHARP & DOHME LLC
  Company Number: None

PATIENT
  Age: 58 Year
  Sex: Female
  Weight: 52 kg

DRUGS (22)
  1. JANUVIA [Suspect]
     Active Substance: SITAGLIPTIN PHOSPHATE
     Indication: Product used for unknown indication
     Dosage: DOSE DESCRIPTION : 100 MILLIGRAM/DOSAGE FORM: NOT SPECIFIED
     Route: 048
  2. JANUVIA [Suspect]
     Active Substance: SITAGLIPTIN PHOSPHATE
     Indication: Product used for unknown indication
     Dosage: DOSE DESCRIPTION : 100 MILLIGRAM
     Route: 048
  3. ACETAMINOPHEN [Suspect]
     Active Substance: ACETAMINOPHEN
     Indication: Product used for unknown indication
     Dosage: DOSE DESCRIPTION : DOSAGE FORM: NOT SPECIFIED
     Route: 065
  4. BACLOFEN [Suspect]
     Active Substance: BACLOFEN
     Indication: Product used for unknown indication
     Dosage: DOSE DESCRIPTION : 30 MILLIGRAM
     Route: 065
  5. BACLOFEN [Suspect]
     Active Substance: BACLOFEN
     Indication: Product used for unknown indication
     Dosage: DOSE DESCRIPTION : 30 MILLIGRAM
     Route: 065
  6. CYMBALTA [Suspect]
     Active Substance: DULOXETINE HYDROCHLORIDE
     Indication: Product used for unknown indication
     Dosage: DOSE DESCRIPTION : 30 MILLIGRAM/ DOSAGE FORM: NOT SPECIFIED
     Route: 065
  7. GLICLAZIDE [Suspect]
     Active Substance: GLICLAZIDE
     Indication: Product used for unknown indication
     Dosage: DOSE DESCRIPTION : 30 MILLIGRAM
     Route: 065
  8. GLICLAZIDE [Suspect]
     Active Substance: GLICLAZIDE
     Indication: Product used for unknown indication
     Dosage: DOSE DESCRIPTION : 30 MILLIGRAM
     Route: 065
  9. LEFLUNOMIDE [Suspect]
     Active Substance: LEFLUNOMIDE
     Indication: Product used for unknown indication
     Dosage: DOSE DESCRIPTION : DOSAGE FORM: NOT SPECIFIED
     Route: 065
  10. LEFLUNOMIDE [Suspect]
     Active Substance: LEFLUNOMIDE
     Indication: Product used for unknown indication
     Dosage: DOSE DESCRIPTION : UNK
     Route: 065
  11. LEUCOVORIN CALCIUM [Suspect]
     Active Substance: LEUCOVORIN CALCIUM
     Indication: Product used for unknown indication
     Dosage: DOSE DESCRIPTION : 10 MILLIGRAM, 1 EVERY 1 WEEK?DAILY DOSE : 1.43 MILLIGRAM?REGIMEN DOSE : 10  MI...
     Route: 065
  12. METFORMIN HYDROCHLORIDE [Suspect]
     Active Substance: METFORMIN HYDROCHLORIDE
     Indication: Product used for unknown indication
     Dosage: DOSE DESCRIPTION : 1000 MILLIGRAM, 2 EVERY 1 DAY(S)?DAILY DOSE : 2000 MILLIGRAM
     Route: 065
  13. MICARDIS [Suspect]
     Active Substance: TELMISARTAN
     Indication: Product used for unknown indication
     Dosage: DOSE DESCRIPTION : 80 MILLIGRAM, 1 EVERY 1 DAYS?DAILY DOSE : 80 MILLIGRAM?CONCENTRATION: 40 MILLI...
     Route: 065
  14. MICARDIS [Suspect]
     Active Substance: TELMISARTAN
     Indication: Product used for unknown indication
     Dosage: DOSE DESCRIPTION : 80 MILLIGRAM, 1 EVERY 1 DAYS?DAILY DOSE : 80 MILLIGRAM
     Route: 065
  15. PROLIA [Concomitant]
     Active Substance: DENOSUMAB
     Indication: Product used for unknown indication
     Dosage: DOSE DESCRIPTION : 60 MILLIGRAM, DOSAGE FORM: SOLUTION SUBCUTANEOUS, PRE-FILLED SYRINGE PRESERATI...
     Route: 058
  16. PROLIA [Concomitant]
     Active Substance: DENOSUMAB
     Indication: Product used for unknown indication
     Dosage: DOSE DESCRIPTION : 60 MILLIGRAM
     Route: 065
  17. ROSUVASTATIN CALCIUM [Suspect]
     Active Substance: ROSUVASTATIN CALCIUM
     Indication: Product used for unknown indication
     Dosage: DOSE DESCRIPTION : 5 MILLIGRAM, 1 EVERY 1 DAY?DAILY DOSE : 5 MILLIGRAM
     Route: 048
  18. ROSUVASTATIN CALCIUM [Suspect]
     Active Substance: ROSUVASTATIN CALCIUM
     Indication: Product used for unknown indication
     Dosage: DOSE DESCRIPTION : UNK
     Route: 065
  19. PANTOPRAZOLE MAGNESIUM [Suspect]
     Active Substance: PANTOPRAZOLE MAGNESIUM
     Indication: Product used for unknown indication
     Dosage: DOSE DESCRIPTION : 40 MILLIGRAM, 1 EVERY 1 DAY?DAILY DOSE : 40 MILLIGRAM
     Route: 048
  20. TYLENOL [Suspect]
     Active Substance: ACETAMINOPHEN
     Indication: Product used for unknown indication
     Dosage: DOSE DESCRIPTION : 1 DOSAGE FORM, 1 EVERY 1 DAY/ DOSAGE FORM: NOT SPECIFIED?DAILY DOSE : 1 DOSAGE...
     Route: 065
  21. TYLENOL [Suspect]
     Active Substance: ACETAMINOPHEN
     Indication: Product used for unknown indication
     Dosage: DOSE DESCRIPTION : 1 DOSAGE FORM, 1 EVERY 1 DAY/ DOSAGE FORM: NOT SPECIFIED?DAILY DOSE : 1 DOSAGE...
     Route: 065
  22. PANTOPRAZOLE MAGNESIUM [Suspect]
     Active Substance: PANTOPRAZOLE MAGNESIUM
     Indication: Product used for unknown indication
     Dosage: 40 MG, 1 EVERY 1 DAY
     Route: 065

REACTIONS (22)
  - Arthralgia [Unknown]
  - Blood pressure systolic increased [Recovering/Resolving]
  - Bursitis [Recovering/Resolving]
  - Dizziness [Recovering/Resolving]
  - Drug ineffective [Recovering/Resolving]
  - Haemoglobin increased [Recovering/Resolving]
  - Hand deformity [Recovering/Resolving]
  - Hypokinesia [Recovering/Resolving]
  - Joint noise [Recovering/Resolving]
  - Joint swelling [Recovering/Resolving]
  - Muscle atrophy [Recovering/Resolving]
  - Musculoskeletal pain [Recovering/Resolving]
  - Myalgia [Recovering/Resolving]
  - Nausea [Recovering/Resolving]
  - Osteoarthritis [Recovering/Resolving]
  - Osteoporosis [Recovering/Resolving]
  - Pain [Recovering/Resolving]
  - Pain in extremity [Recovering/Resolving]
  - Rheumatoid arthritis [Recovering/Resolving]
  - Rotator cuff syndrome [Recovering/Resolving]
  - Scoliosis [Recovering/Resolving]
  - Tendonitis [Recovering/Resolving]

NARRATIVE: CASE EVENT DATE: 20000101
